FAERS Safety Report 8375916 (Version 2)
Quarter: 2013Q1

REPORT INFORMATION
  Report Type: Report from Study
  Country: US (occurrence: US)
  Receive Date: 20120129
  Receipt Date: 20130129
  Transmission Date: 20140127
  Serious: No
  Sender: FDA-Public Use
  Company Number: US-ABBOTT-11P-163-0883610-00

PATIENT
  Age: 39 None
  Sex: Female

DRUGS (4)
  1. HUMIRA 40 MG/0.8 ML PEN [Suspect]
     Indication: PSORIATIC ARTHROPATHY
     Dates: start: 201109
  2. HUMIRA 40 MG/0.8 ML PEN [Suspect]
  3. TYLENOL [Concomitant]
     Indication: ARTHRITIS
     Route: 048
  4. IBUPROFEN [Concomitant]
     Indication: PAIN
     Route: 048

REACTIONS (5)
  - Injection site pain [Recovered/Resolved]
  - Injection site pain [Unknown]
  - Injection site pain [Not Recovered/Not Resolved]
  - Device malfunction [Unknown]
  - Incorrect dose administered [Unknown]
